FAERS Safety Report 7986257-9 (Version None)
Quarter: 2011Q4

REPORT INFORMATION
  Report Type: 
  Country: None (occurrence: None)
  Receive Date: 20111216
  Receipt Date: 20110119
  Transmission Date: 20120403
  Serious: No
  Sender: FDA-Public Use
  Company Number: US-BRISTOL-MYERS SQUIBB COMPANY-15499619

PATIENT
  Age: 35 Year
  Sex: Male

DRUGS (2)
  1. TEMAZEPAM [Concomitant]
  2. ABILIFY [Suspect]
     Indication: SCHIZOPHRENIA
     Route: 048

REACTIONS (1)
  - HYPOAESTHESIA [None]
